FAERS Safety Report 22623480 (Version 2)
Quarter: 2023Q2

REPORT INFORMATION
  Report Type: Spontaneous
  Country: US (occurrence: US)
  Receive Date: 20230621
  Receipt Date: 20230622
  Transmission Date: 20230722
  Serious: No
  Sender: FDA-Public Use
  Company Number: US-ABBVIE-5298739

PATIENT
  Age: 61 Year
  Sex: Male

DRUGS (1)
  1. FABIOR [Suspect]
     Active Substance: TAZAROTENE
     Indication: Hair growth abnormal
     Route: 061
     Dates: start: 20230419

REACTIONS (2)
  - Pain [Unknown]
  - Skin burning sensation [Unknown]
